FAERS Safety Report 9110241 (Version 1)
Quarter: 2013Q1

REPORT INFORMATION
  Report Type: Spontaneous
  Country: US (occurrence: US)
  Receive Date: 20130222
  Receipt Date: 20130222
  Transmission Date: 20140127
  Serious: Yes (Other)
  Sender: FDA-Public Use
  Company Number: US-TEVA-387410USA

PATIENT
  Age: 82 Year
  Sex: Female

DRUGS (8)
  1. TREANDA [Suspect]
     Route: 042
     Dates: start: 20121101
  2. TREANDA [Suspect]
     Route: 042
     Dates: start: 20121129
  3. TREANDA [Suspect]
     Route: 042
     Dates: start: 20121221
  4. TREANDA [Suspect]
     Route: 042
     Dates: start: 20130104
  5. RITUXAN [Concomitant]
     Dosage: 100MGS/20ML
     Route: 042
     Dates: start: 20121101
  6. RITUXAN [Concomitant]
     Dates: start: 20121129
  7. RITUXAN [Concomitant]
     Dates: start: 20121221
  8. RITUXAN [Concomitant]
     Dates: start: 20130104

REACTIONS (1)
  - Rash [Recovering/Resolving]
